FAERS Safety Report 8906046 (Version 1)
Quarter: 2012Q4

REPORT INFORMATION
  Report Type: Report from Study
  Country: US (occurrence: US)
  Receive Date: 20121113
  Receipt Date: 20121113
  Transmission Date: 20130627
  Serious: Yes (Other)
  Sender: FDA-Public Use
  Company Number: US-ABBOTT-12P-163-1004231-00

PATIENT
  Age: 36 Year
  Sex: Female
  Weight: 95.34 kg

DRUGS (15)
  1. HUMIRA [Suspect]
     Indication: PSORIATIC ARTHROPATHY
     Route: 050
     Dates: start: 20111116, end: 20120815
  2. PRENATAL VITAMIN NOS [Concomitant]
     Indication: PRODUCT USED FOR UNKNOWN INDICATION
     Route: 048
     Dates: start: 20111216, end: 20120615
  3. DHA [Concomitant]
     Indication: PRODUCT USED FOR UNKNOWN INDICATION
     Route: 048
     Dates: start: 20111216, end: 20120815
  4. PREDNISONE [Concomitant]
     Indication: PRODUCT USED FOR UNKNOWN INDICATION
     Route: 048
     Dates: start: 20120202, end: 20120218
  5. FLU VACCINE [Concomitant]
     Indication: PRODUCT USED FOR UNKNOWN INDICATION
     Dates: start: 20111001, end: 20111031
  6. TYLENOL EXTRA STRENGTH [Concomitant]
     Indication: HEADACHE
     Dosage: 2 pill
     Route: 048
     Dates: start: 20111116, end: 20120815
  7. TYLENOL EXTRA STRENGTH [Concomitant]
     Indication: PAIN
  8. TUMS [Concomitant]
     Indication: DYSPEPSIA
     Route: 048
     Dates: start: 20111116, end: 20120815
  9. METFORMIN HCL [Concomitant]
     Indication: GESTATIONAL DIABETES
     Route: 048
     Dates: start: 20120210, end: 20120815
  10. NPH INSULIN [Concomitant]
     Indication: PRODUCT USED FOR UNKNOWN INDICATION
     Dates: start: 20120228, end: 20120815
  11. RHOGAM [Concomitant]
     Indication: PRODUCT USED FOR UNKNOWN INDICATION
     Route: 050
     Dates: start: 20120531, end: 20120531
  12. BENADRYL [Concomitant]
     Indication: PRODUCT USED FOR UNKNOWN INDICATION
     Route: 048
     Dates: start: 20120630, end: 20120630
  13. CAFFEINE [Concomitant]
     Indication: PRODUCT USED FOR UNKNOWN INDICATION
     Dates: start: 20120701, end: 20120815
  14. TEA [Concomitant]
     Dates: start: 20111116, end: 20120406
  15. ALCOHOL (LIQUOR/WINE/BEER) [Concomitant]
     Indication: PRODUCT USED FOR UNKNOWN INDICATION
     Dates: start: 20111212, end: 20111212

REACTIONS (4)
  - Gestational diabetes [Unknown]
  - Nasopharyngitis [Unknown]
  - Dyspepsia [Unknown]
  - Headache [Unknown]
